FAERS Safety Report 24324672 (Version 3)
Quarter: 2025Q3

REPORT INFORMATION
  Report Type: Report from Study
  Country: US (occurrence: US)
  Receive Date: 20240916
  Receipt Date: 20250810
  Transmission Date: 20251020
  Serious: No
  Sender: ALEXION PHARMACEUTICALS
  Company Number: US-AstraZeneca-CH-00704410A

PATIENT
  Sex: Female

DRUGS (1)
  1. STRENSIQ [Suspect]
     Active Substance: ASFOTASE ALFA
     Indication: Hypophosphatasia
     Route: 065

REACTIONS (8)
  - Weight gain poor [Unknown]
  - Injury [Unknown]
  - Insomnia [Unknown]
  - Rash [Unknown]
  - Skin discolouration [Unknown]
  - Enuresis [Unknown]
  - Injection site bruising [Unknown]
  - Swelling [Unknown]
